FAERS Safety Report 5632909-5 (Version None)
Quarter: 2008Q1

REPORT INFORMATION
  Report Type: 
  Country: None (occurrence: None)
  Receive Date: 20080221
  Receipt Date: 20080216
  Transmission Date: 20080703
  Serious: Yes (Hospitalization)
  Sender: FDA-Public Use
  Company Number: PHHO2008JP02051

PATIENT
  Age: 65 Year
  Sex: Male
  Weight: 56 kg

DRUGS (6)
  1. GLAKAY [Concomitant]
     Indication: MYELODYSPLASTIC SYNDROME
  2. ALFAROL [Concomitant]
     Indication: MYELODYSPLASTIC SYNDROME
  3. NIFLAN [Concomitant]
     Indication: CATARACT
  4. NEO-MINOPHAGEN C [Concomitant]
  5. LOXONIN [Concomitant]
  6. EXJADE [Suspect]
     Indication: HAEMOSIDEROSIS
     Dosage: 1125 MG, QD
     Route: 048
     Dates: start: 20080117, end: 20080215

REACTIONS (7)
  - CHEST PAIN [None]
  - CHILLS [None]
  - COUGH [None]
  - HENOCH-SCHONLEIN PURPURA [None]
  - PNEUMONIA [None]
  - PYREXIA [None]
  - RASH [None]
